FAERS Safety Report 9753761 (Version 1)
Quarter: 2013Q4

REPORT INFORMATION
  Report Type: Spontaneous
  Country: US (occurrence: US)
  Receive Date: 20131213
  Receipt Date: 20131213
  Transmission Date: 20140711
  Serious: No
  Sender: FDA-Public Use
  Company Number: US-GILEAD-2010-0026734

PATIENT
  Age: 59 Year
  Sex: Female

DRUGS (12)
  1. LETAIRIS [Suspect]
     Indication: PULMONARY ARTERIAL HYPERTENSION
     Route: 048
     Dates: start: 20090918
  2. HUMIRA [Suspect]
  3. METHOTREXATE [Suspect]
  4. LASIX [Suspect]
  5. REVATIO [Concomitant]
  6. CARDIZEM CD [Concomitant]
  7. PLAQUENIL [Concomitant]
  8. LYRICA [Concomitant]
  9. FLEXERIL [Concomitant]
  10. TRAZODONE [Concomitant]
  11. CELEBREX [Concomitant]
  12. FOLIC ACID [Concomitant]

REACTIONS (2)
  - Blood potassium decreased [Unknown]
  - Red blood cell count decreased [Unknown]
